FAERS Safety Report 7001185-3 (Version None)
Quarter: 2010Q3

REPORT INFORMATION
  Report Type: 
  Country: None (occurrence: None)
  Receive Date: 20100920
  Receipt Date: 20070403
  Transmission Date: 20110219
  Serious: No
  Sender: FDA-Public Use
  Company Number: US-ASTRAZENECA-2007UW04154

PATIENT
  Age: 15568 Day
  Sex: Male
  Weight: 128.4 kg

DRUGS (13)
  1. SEROQUEL [Suspect]
     Indication: SCHIZOPHRENIA
     Dosage: 50 - 300 MG
     Route: 048
     Dates: start: 20040419, end: 20051201
  2. SEROQUEL [Suspect]
     Indication: DEPRESSION
     Dosage: 50 - 300 MG
     Route: 048
     Dates: start: 20040419, end: 20051201
  3. SEROQUEL [Suspect]
     Dosage: 50MG -300MG AT NIGHT
     Route: 048
     Dates: start: 20040419
  4. SEROQUEL [Suspect]
     Dosage: 50MG -300MG AT NIGHT
     Route: 048
     Dates: start: 20040419
  5. ABILIFY [Concomitant]
     Dates: start: 20041027
  6. GEODON [Concomitant]
     Dates: start: 20040422, end: 20040529
  7. HALDOL [Concomitant]
     Dosage: 5 - 10 MG
     Dates: start: 20040225, end: 20040303
  8. ATIVAN [Concomitant]
     Indication: ANXIETY
     Dosage: 1MG -2MG AT NIGHT
     Route: 048
     Dates: start: 20040420
  9. CLONIDINE [Concomitant]
     Dosage: 0.4MG - 10MG DAILY
     Route: 048
     Dates: start: 20040210
  10. TRAZODONE HCL [Concomitant]
     Indication: INSOMNIA
     Route: 048
     Dates: start: 20040420
  11. PROPRANOLOL [Concomitant]
     Route: 048
     Dates: start: 20040422
  12. HYDROCHLOROTHIAZIDE [Concomitant]
     Route: 048
     Dates: start: 20040422
  13. DILTIAZEM [Concomitant]
     Route: 048
     Dates: start: 20040422

REACTIONS (13)
  - BLOOD CHOLESTEROL INCREASED [None]
  - BLOOD TRIGLYCERIDES INCREASED [None]
  - DIABETES MELLITUS [None]
  - GASTRIC DISORDER [None]
  - GASTRIC ULCER [None]
  - GASTRITIS [None]
  - GASTROOESOPHAGEAL REFLUX DISEASE [None]
  - HIATUS HERNIA [None]
  - HYPERLIPIDAEMIA [None]
  - OBESITY [None]
  - SLEEP APNOEA SYNDROME [None]
  - TYPE 2 DIABETES MELLITUS [None]
  - WEIGHT INCREASED [None]
